FAERS Safety Report 24939438 (Version 1)
Quarter: 2025Q1

REPORT INFORMATION
  Report Type: Report from Study
  Country: US (occurrence: US)
  Receive Date: 20250206
  Receipt Date: 20250206
  Transmission Date: 20250409
  Serious: Yes (Hospitalization, Other)
  Sender: ABBVIE
  Company Number: US-ABBVIE-6116107

PATIENT
  Sex: Male

DRUGS (1)
  1. RINVOQ [Suspect]
     Active Substance: UPADACITINIB
     Indication: Crohn^s disease
     Route: 048
     Dates: start: 20241112

REACTIONS (8)
  - Gait disturbance [Unknown]
  - Deafness [Unknown]
  - Nerve compression [Unknown]
  - Back pain [Unknown]
  - Drug intolerance [Unknown]
  - Tinnitus [Unknown]
  - Dizziness [Unknown]
  - Muscle tightness [Unknown]
